FAERS Safety Report 24340679 (Version 1)
Quarter: 2024Q3

REPORT INFORMATION
  Report Type: Spontaneous
  Country: US (occurrence: US)
  Receive Date: 20240919
  Receipt Date: 20240919
  Transmission Date: 20241017
  Serious: Yes (Death, Other)
  Sender: AMGEN
  Company Number: US-AMGEN-USASP2024185423

PATIENT

DRUGS (3)
  1. RITUXIMAB [Suspect]
     Active Substance: RITUXIMAB
     Indication: Non-Hodgkin^s lymphoma unspecified histology indolent
     Dosage: 375 MILLIGRAM/SQ. METER, QWK, FOR 4 WEEKS
     Route: 065
  2. RITUXIMAB [Suspect]
     Active Substance: RITUXIMAB
     Dosage: EVERY 28 DAYS DURING CYCLES 2 TO 5
     Route: 065
  3. LENALIDOMIDE [Concomitant]
     Active Substance: LENALIDOMIDE
     Indication: Non-Hodgkin^s lymphoma unspecified histology indolent
     Dosage: 20 MILLIGRAM, QD, FOR 21 OUT OF 28 DAYS FOR TWELVE 28-DAY CYCLES
     Route: 048

REACTIONS (41)
  - Non-Hodgkin^s lymphoma refractory [Unknown]
  - Death [Fatal]
  - Neutropenia [Unknown]
  - Thrombocytopenia [Unknown]
  - Neuropathy peripheral [Unknown]
  - Deep vein thrombosis [Unknown]
  - Tumour lysis syndrome [Unknown]
  - Pneumonia [Unknown]
  - Febrile neutropenia [Unknown]
  - Drug ineffective [Unknown]
  - Bacterial sepsis [Unknown]
  - Colitis [Unknown]
  - Fatigue [Unknown]
  - Constipation [Unknown]
  - Diarrhoea [Unknown]
  - Rash [Unknown]
  - Anaemia [Unknown]
  - Muscle spasms [Unknown]
  - Hypertransaminasaemia [Unknown]
  - Nausea [Unknown]
  - Blood bilirubin increased [Unknown]
  - Urinary tract infection [Unknown]
  - Arthralgia [Unknown]
  - Decreased appetite [Unknown]
  - Blood alkaline phosphatase increased [Unknown]
  - Headache [Unknown]
  - Cough [Unknown]
  - Bronchitis [Unknown]
  - Upper respiratory tract infection [Unknown]
  - Pruritus [Unknown]
  - Soft tissue infection [Unknown]
  - Abdominal pain [Unknown]
  - Xerosis [Unknown]
  - Bone pain [Unknown]
  - Tremor [Unknown]
  - Herpes zoster [Unknown]
  - Therapy partial responder [Unknown]
  - Toxicity to various agents [Unknown]
  - COVID-19 [Unknown]
  - Alanine aminotransferase increased [Unknown]
  - Aspartate aminotransferase increased [Unknown]
